FAERS Safety Report 9914997 (Version 1)
Quarter: 2014Q1

REPORT INFORMATION
  Report Type: Spontaneous
  Country: US (occurrence: US)
  Receive Date: 20140220
  Receipt Date: 20140220
  Transmission Date: 20141002
  Serious: Yes (Hospitalization)
  Sender: FDA-Public Use
  Company Number: PHHY2014US016355

PATIENT
  Age: 28 Year
  Sex: Male

DRUGS (5)
  1. VALPROIC ACID [Suspect]
     Indication: DEPRESSED MOOD
  2. OLANZAPINE [Suspect]
     Indication: DEPRESSED MOOD
     Dosage: 15 MG, UNK
  3. OLANZAPINE [Suspect]
     Dosage: 10 MG, UNK
  4. LORAZEPAM [Suspect]
     Indication: DEPRESSED MOOD
     Dosage: 0.5 MG, IN MORNING
  5. DEPAKOTE [Suspect]
     Indication: DEPRESSED MOOD
     Dosage: 500 MG, QID

REACTIONS (3)
  - Carnitine deficiency [Recovered/Resolved]
  - Hyperammonaemia [Recovered/Resolved]
  - Drug ineffective [Unknown]
